FAERS Safety Report 7402719-7 (Version None)
Quarter: 2011Q2

REPORT INFORMATION
  Report Type: 
  Country: None (occurrence: None)
  Receive Date: 20110408
  Receipt Date: 20110401
  Transmission Date: 20111010
  Serious: Yes (Hospitalization)
  Sender: FDA-Public Use
  Company Number: HK-ROCHE-758182

PATIENT
  Sex: Female
  Weight: 65.4 kg

DRUGS (6)
  1. BEVACIZUMAB [Suspect]
     Route: 042
     Dates: start: 20110218
  2. CARBOPLATIN [Suspect]
     Dosage: FREQ: Q3W.
     Route: 065
     Dates: start: 20110218
  3. PACLITAXEL [Suspect]
     Dosage: FREQ: Q3W.
     Route: 065
     Dates: start: 20110218
  4. PACLITAXEL [Suspect]
     Route: 065
     Dates: start: 20110117, end: 20110209
  5. BEVACIZUMAB [Suspect]
     Dosage: DOSAGE FORM: VIAL. TEMPORARILY INTERRUPTED.
     Route: 042
     Dates: start: 20110117, end: 20110209
  6. CARBOPLATIN [Suspect]
     Route: 065
     Dates: start: 20110117, end: 20110209

REACTIONS (1)
  - HEPATIC ENZYME ABNORMAL [None]
